FAERS Safety Report 25235212 (Version 2)
Quarter: 2025Q2

REPORT INFORMATION
  Report Type: Spontaneous
  Country: US (occurrence: US)
  Receive Date: 20250424
  Receipt Date: 20250613
  Transmission Date: 20250717
  Serious: No
  Sender: MARINUS PHARMACEUTICALS
  Company Number: US-MARINUS PHARMACEUTICALS, INC.-MAR2025000079

PATIENT

DRUGS (2)
  1. ZTALMY [Suspect]
     Active Substance: GANAXOLONE
     Indication: Febrile infection-related epilepsy syndrome
     Route: 048
     Dates: start: 20240702
  2. ZTALMY [Suspect]
     Active Substance: GANAXOLONE
     Route: 048
     Dates: start: 20250122

REACTIONS (2)
  - Drug effective for unapproved indication [Unknown]
  - Product use in unapproved indication [None]

NARRATIVE: CASE EVENT DATE: 20240702
